FAERS Safety Report 4879114-8 (Version None)
Quarter: 2006Q1

REPORT INFORMATION
  Report Type: 
  Country: None (occurrence: None)
  Receive Date: 20060112
  Receipt Date: 20051219
  Transmission Date: 20060701
  Serious: Yes (Hospitalization)
  Sender: FDA-Public Use
  Company Number: GB-JNJFOC-20060102066

PATIENT
  Age: 70 Year
  Sex: Male

DRUGS (13)
  1. REMINYL [Suspect]
  2. REMINYL [Suspect]
     Indication: DRUG USE FOR UNKNOWN INDICATION
  3. SULFASALAZINE [Suspect]
     Indication: DRUG USE FOR UNKNOWN INDICATION
  4. QUININE SULPHATE [Suspect]
     Indication: DRUG USE FOR UNKNOWN INDICATION
  5. CO-DYDRAMOL [Suspect]
  6. CO-DYDRAMOL [Suspect]
     Indication: DRUG USE FOR UNKNOWN INDICATION
     Dosage: 1 DOSE= 2 TABLETS
  7. NIFEDIPINE [Suspect]
     Indication: DRUG USE FOR UNKNOWN INDICATION
  8. SIMVASTATIN [Suspect]
     Indication: DRUG USE FOR UNKNOWN INDICATION
  9. CELECOXIB [Suspect]
     Indication: DRUG USE FOR UNKNOWN INDICATION
  10. TAMSULOSIN HCL [Concomitant]
  11. ESOMEPRAZOLE [Concomitant]
  12. ASPIRIN TAB [Concomitant]
  13. ATENOLOL [Concomitant]

REACTIONS (9)
  - ALANINE AMINOTRANSFERASE INCREASED [None]
  - ASPARTATE AMINOTRANSFERASE INCREASED [None]
  - BLOOD ALKALINE PHOSPHATASE INCREASED [None]
  - BLOOD BILIRUBIN INCREASED [None]
  - BLOOD LACTATE DEHYDROGENASE INCREASED [None]
  - CHILLS [None]
  - GAMMA-GLUTAMYLTRANSFERASE INCREASED [None]
  - JAUNDICE [None]
  - PYREXIA [None]
